FAERS Safety Report 19615800 (Version 1)
Quarter: 2021Q3

REPORT INFORMATION
  Report Type: Report from Study
  Country: FR (occurrence: FR)
  Receive Date: 20210727
  Receipt Date: 20210727
  Transmission Date: 20211014
  Serious: Yes (Other)
  Sender: FDA-Public Use
  Company Number: FR-TAKEDA-2021TUS044427

PATIENT
  Age: 55 Year
  Sex: Male

DRUGS (28)
  1. TEDUGLUTIDE [Suspect]
     Active Substance: TEDUGLUTIDE
     Dosage: 3.2 MILLIGRAM (0.05MG/KG), QD
     Route: 065
     Dates: start: 20160603, end: 20160704
  2. TEDUGLUTIDE [Suspect]
     Active Substance: TEDUGLUTIDE
     Indication: SHORT-BOWEL SYNDROME
     Dosage: 3.4 MILLIGRAM (0.05MG/KG), QD
     Route: 065
     Dates: start: 20160511, end: 20160603
  3. TEDUGLUTIDE [Suspect]
     Active Substance: TEDUGLUTIDE
     Dosage: 3.0 MILLIGRAM (0.05MG/KG), QD
     Route: 065
     Dates: start: 20160920, end: 20170328
  4. TEDUGLUTIDE [Suspect]
     Active Substance: TEDUGLUTIDE
     Dosage: 2.8 MILLIGRAM (0.05MG/KG), QD
     Route: 065
     Dates: start: 20170329, end: 20170526
  5. VEDOLIZUMAB [Concomitant]
     Active Substance: VEDOLIZUMAB
     Indication: CROHN^S DISEASE
     Dosage: 300 MILLIGRAM, ONE DOSE
     Route: 042
     Dates: start: 20190821, end: 20190821
  6. TEDUGLUTIDE [Suspect]
     Active Substance: TEDUGLUTIDE
     Indication: SHORT-BOWEL SYNDROME
     Dosage: 3.4 MILLIGRAM (0.05MG/KG), QD
     Route: 065
     Dates: start: 20160511, end: 20160603
  7. TEDUGLUTIDE [Suspect]
     Active Substance: TEDUGLUTIDE
     Dosage: 3.2 MILLIGRAM (0.05MG/KG), QD
     Route: 065
     Dates: start: 20160603, end: 20160704
  8. TEDUGLUTIDE [Suspect]
     Active Substance: TEDUGLUTIDE
     Dosage: 3.2 MILLIGRAM (0.05MG/KG), QD
     Route: 065
     Dates: start: 20160603, end: 20160704
  9. TEDUGLUTIDE [Suspect]
     Active Substance: TEDUGLUTIDE
     Dosage: 2.8 MILLIGRAM (0.05MG/KG), QD
     Route: 065
     Dates: start: 20170329, end: 20170526
  10. TEDUGLUTIDE [Suspect]
     Active Substance: TEDUGLUTIDE
     Dosage: 2.8 MILLIGRAM (0.05MG/KG), QD
     Route: 065
     Dates: start: 20170329, end: 20170526
  11. VEDOLIZUMAB [Concomitant]
     Active Substance: VEDOLIZUMAB
     Dosage: 300 MILLIGRAM, ONE DOSE
     Route: 042
     Dates: start: 20190626
  12. TEDUGLUTIDE [Suspect]
     Active Substance: TEDUGLUTIDE
     Dosage: 3.0 MILLIGRAM (0.05MG/KG), QD
     Route: 065
     Dates: start: 20160704, end: 20160824
  13. TEDUGLUTIDE [Suspect]
     Active Substance: TEDUGLUTIDE
     Dosage: 3.0 MILLIGRAM (0.05MG/KG), QD
     Route: 065
     Dates: start: 20160704, end: 20160824
  14. TEDUGLUTIDE [Suspect]
     Active Substance: TEDUGLUTIDE
     Dosage: 3.0 MILLIGRAM (0.05MG/KG), QD
     Route: 065
     Dates: start: 20160920, end: 20170328
  15. BISOPROLOL [Concomitant]
     Active Substance: BISOPROLOL
     Indication: HYPERTENSION
     Dosage: 1.25 MILLIGRAM, QD
     Route: 048
     Dates: start: 20190201
  16. TEDUGLUTIDE [Suspect]
     Active Substance: TEDUGLUTIDE
     Indication: SHORT-BOWEL SYNDROME
     Dosage: 3.4 MILLIGRAM (0.05MG/KG), QD
     Route: 065
     Dates: start: 20160511, end: 20160603
  17. TEDUGLUTIDE [Suspect]
     Active Substance: TEDUGLUTIDE
     Dosage: 3.0 MILLIGRAM (0.05MG/KG), QD
     Route: 065
     Dates: start: 20160920, end: 20170328
  18. TEDUGLUTIDE [Suspect]
     Active Substance: TEDUGLUTIDE
     Indication: SHORT-BOWEL SYNDROME
     Dosage: 3.4 MILLIGRAM (0.05MG/KG), QD
     Route: 065
     Dates: start: 20160511, end: 20160603
  19. TEDUGLUTIDE [Suspect]
     Active Substance: TEDUGLUTIDE
     Dosage: 3.2 MILLIGRAM (0.05MG/KG), QD
     Route: 065
     Dates: start: 20160603, end: 20160704
  20. TEDUGLUTIDE [Suspect]
     Active Substance: TEDUGLUTIDE
     Dosage: 3.0 MILLIGRAM (0.05MG/KG), QD
     Route: 065
     Dates: start: 20160920, end: 20170328
  21. VEDOLIZUMAB [Concomitant]
     Active Substance: VEDOLIZUMAB
     Dosage: 300 MILLIGRAM, ONE DOSE
     Route: 042
     Dates: start: 20190302, end: 20190502
  22. TEDUGLUTIDE [Suspect]
     Active Substance: TEDUGLUTIDE
     Dosage: 3.0 MILLIGRAM (0.05MG/KG), QD
     Route: 065
     Dates: start: 20160704, end: 20160824
  23. TEDUGLUTIDE [Suspect]
     Active Substance: TEDUGLUTIDE
     Dosage: 3.0 MILLIGRAM (0.05MG/KG), QD
     Route: 065
     Dates: start: 20160704, end: 20160824
  24. TEDUGLUTIDE [Suspect]
     Active Substance: TEDUGLUTIDE
     Dosage: 3.1 MILLIGRAM (0.05MG/KG), QD
     Route: 065
     Dates: start: 20160824, end: 20160920
  25. TEDUGLUTIDE [Suspect]
     Active Substance: TEDUGLUTIDE
     Dosage: 3.1 MILLIGRAM (0.05MG/KG), QD
     Route: 065
     Dates: start: 20160824, end: 20160920
  26. TEDUGLUTIDE [Suspect]
     Active Substance: TEDUGLUTIDE
     Dosage: 3.1 MILLIGRAM (0.05MG/KG), QD
     Route: 065
     Dates: start: 20160824, end: 20160920
  27. TEDUGLUTIDE [Suspect]
     Active Substance: TEDUGLUTIDE
     Dosage: 3.1 MILLIGRAM (0.05MG/KG), QD
     Route: 065
     Dates: start: 20160824, end: 20160920
  28. TEDUGLUTIDE [Suspect]
     Active Substance: TEDUGLUTIDE
     Dosage: 2.8 MILLIGRAM (0.05MG/KG), QD
     Route: 065
     Dates: start: 20170329, end: 20170526

REACTIONS (2)
  - Hypokalaemia [Not Recovered/Not Resolved]
  - Hyperthermia [Not Recovered/Not Resolved]

NARRATIVE: CASE EVENT DATE: 20170310
